FAERS Safety Report 8098179-6 (Version None)
Quarter: 2012Q1

REPORT INFORMATION
  Report Type: 
  Country: None (occurrence: None)
  Receive Date: 20120128
  Receipt Date: 20110809
  Transmission Date: 20120608
  Serious: No
  Sender: FDA-Public Use
  Company Number: US-ABBOTT-11P-163-0845122-00

PATIENT
  Age: 41 Year
  Sex: Female

DRUGS (5)
  1. ASCORBIC ACID [Concomitant]
     Indication: PRODUCT USED FOR UNKNOWN INDICATION
     Dosage: DAILY
  2. HUMIRA [Suspect]
     Indication: PSORIATIC ARTHROPATHY
     Dates: start: 20101001
  3. VITAMIN TAB [Concomitant]
     Indication: PRODUCT USED FOR UNKNOWN INDICATION
     Dosage: DAILY
  4. ACETAMINOPHEN [Concomitant]
     Indication: PAIN
  5. NEXIUM [Concomitant]
     Indication: DYSPEPSIA

REACTIONS (1)
  - VAGINITIS BACTERIAL [None]
